FAERS Safety Report 9504888 (Version 2)
Quarter: 2013Q3

REPORT INFORMATION
  Report Type: Report from Study
  Country: US (occurrence: US)
  Receive Date: 20130906
  Receipt Date: 20130906
  Transmission Date: 20140515
  Serious: Yes (Hospitalization, Other)
  Sender: FDA-Public Use
  Company Number: US-ASTRAZENECA-2013SE03838

PATIENT
  Age: 58 Year
  Sex: Male
  Weight: 99.8 kg

DRUGS (4)
  1. NEXIUM [Suspect]
     Indication: GASTROOESOPHAGEAL REFLUX DISEASE
     Route: 048
     Dates: start: 2003
  2. LANTUS [Concomitant]
     Indication: TYPE 1 DIABETES MELLITUS
     Dosage: 60 UNITS DAILY
     Dates: start: 201212
  3. LINAGLIPTIN [Concomitant]
     Indication: TYPE 1 DIABETES MELLITUS
     Route: 048
     Dates: start: 201212
  4. WARFARIN [Concomitant]
     Indication: ANTICOAGULANT THERAPY
     Route: 048
     Dates: start: 1995

REACTIONS (7)
  - Myocardial infarction [Recovered/Resolved with Sequelae]
  - Cerebrovascular accident [Recovered/Resolved with Sequelae]
  - Aortic aneurysm [Recovered/Resolved with Sequelae]
  - Aneurysm [Unknown]
  - Memory impairment [Not Recovered/Not Resolved]
  - Insulin-requiring type 2 diabetes mellitus [Not Recovered/Not Resolved]
  - Diabetes mellitus [Unknown]
